FAERS Safety Report 6311739-5 (Version None)
Quarter: 2009Q3

REPORT INFORMATION
  Report Type: 
  Country: None (occurrence: None)
  Receive Date: 20090813
  Receipt Date: 20090813
  Transmission Date: 20100115
  Serious: Yes (Disabling)
  Sender: FDA-Public Use
  Company Number: None

PATIENT
  Age: 67 Year
  Sex: Female
  Weight: 55.3388 kg

DRUGS (1)
  1. PRONAMEL TOOTHPASTE BY SENSODYNE [Suspect]
     Indication: DENTAL DISORDER PROPHYLAXIS
     Dosage: BRUSH TEETH TWICE DAILY APRIL + PART OF MAY 2009

REACTIONS (3)
  - GLOSSODYNIA [None]
  - INSOMNIA [None]
  - ORAL PAIN [None]
